FAERS Safety Report 4427684-6 (Version None)
Quarter: 2004Q3

REPORT INFORMATION
  Report Type: 
  Country: None (occurrence: None)
  Receive Date: 20040812
  Receipt Date: 20040730
  Transmission Date: 20050211
  Serious: Yes (Other)
  Sender: FDA-Public Use
  Company Number: 2004046507

PATIENT
  Sex: Male
  Weight: 81.6475 kg

DRUGS (1)
  1. LITHIUM [Suspect]
     Indication: BIPOLAR I DISORDER

REACTIONS (7)
  - BENIGN PROSTATIC HYPERPLASIA [None]
  - BLADDER CANCER [None]
  - FEELING ABNORMAL [None]
  - FLAT AFFECT [None]
  - HEARING IMPAIRED [None]
  - MENINGIOMA [None]
  - STRESS SYMPTOMS [None]
